FAERS Safety Report 18810055 (Version 1)
Quarter: 2021Q1

REPORT INFORMATION
  Report Type: Spontaneous
  Country: FR (occurrence: FR)
  Receive Date: 20210129
  Receipt Date: 20210129
  Transmission Date: 20210419
  Serious: Yes (Other)
  Sender: FDA-Public Use
  Company Number: FR-CURIUM-2021000016

PATIENT
  Age: 42 Year
  Sex: Female
  Weight: 115 kg

DRUGS (4)
  1. IODURE [131 I] DE SODIUM (SODIUM IODIDE) [Suspect]
     Active Substance: SODIUM IODIDE I-131
     Indication: PAPILLARY THYROID CANCER
     Route: 048
     Dates: start: 20100531, end: 20100531
  2. IODURE [131 I] DE SODIUM (SODIUM IODIDE) [Suspect]
     Active Substance: SODIUM IODIDE I-131
     Indication: PAPILLARY THYROID CANCER
     Route: 048
     Dates: start: 20131104, end: 20131104
  3. IODURE [131 I] DE SODIUM (SODIUM IODIDE) [Suspect]
     Active Substance: SODIUM IODIDE I-131
     Indication: PAPILLARY THYROID CANCER
     Route: 048
     Dates: start: 20090525, end: 20090525
  4. LEVOTHYROX [Concomitant]
     Active Substance: LEVOTHYROXINE
     Indication: PRODUCT USED FOR UNKNOWN INDICATION
     Route: 065
     Dates: start: 2009

REACTIONS (1)
  - Infertility [Not Recovered/Not Resolved]

NARRATIVE: CASE EVENT DATE: 2019
